FAERS Safety Report 9164652 (Version 4)
Quarter: 2013Q4

REPORT INFORMATION
  Report Type: Spontaneous
  Country: JP (occurrence: None)
  Receive Date: 20130226
  Receipt Date: 20131025
  Transmission Date: 20140711
  Serious: Yes (Death, Other)
  Sender: FDA-Public Use
  Company Number: JP-010966

PATIENT
  Age: 79 Year
  Sex: Male

DRUGS (1)
  1. DEGARELIX [Suspect]
     Indication: PROSTATE CANCER
     Route: 058
     Dates: start: 20130130, end: 20130130

REACTIONS (4)
  - Renal failure [None]
  - Injection site pain [None]
  - Injection site erythema [None]
  - Injection site induration [None]
